FAERS Safety Report 25379741 (Version 1)
Quarter: 2025Q2

REPORT INFORMATION
  Report Type: Spontaneous
  Country: US (occurrence: None)
  Receive Date: 20250530
  Receipt Date: 20250530
  Transmission Date: 20250717
  Serious: Yes (Other)
  Sender: FDA-CTU
  Company Number: None

PATIENT
  Age: 60 Year
  Sex: Male
  Weight: 95.85 kg

DRUGS (3)
  1. CLONAZEPAM [Suspect]
     Active Substance: CLONAZEPAM
     Indication: Anxiety
  2. CLONAZEPAM [Suspect]
     Active Substance: CLONAZEPAM
     Indication: Affective disorder
  3. CLONAZEPAM [Suspect]
     Active Substance: CLONAZEPAM
     Indication: Depression

REACTIONS (12)
  - Memory impairment [None]
  - Cognitive disorder [None]
  - Suicidal ideation [None]
  - Negative thoughts [None]
  - Pain [None]
  - Malaise [None]
  - Malaise [None]
  - Abdominal pain upper [None]
  - Amnesia [None]
  - Anger [None]
  - Nervous system disorder [None]
  - Drug withdrawal syndrome [None]

NARRATIVE: CASE EVENT DATE: 20250505
